FAERS Safety Report 8806438 (Version 2)
Quarter: 2013Q2

REPORT INFORMATION
  Report Type: Spontaneous
  Country: BR (occurrence: BR)
  Receive Date: 20120925
  Receipt Date: 20130521
  Transmission Date: 20140414
  Serious: Yes (Other)
  Sender: FDA-Public Use
  Company Number: BR-BAYER-2012-099471

PATIENT
  Age: 27 Year
  Sex: Female

DRUGS (1)
  1. ULTRAVIST [Suspect]
     Indication: COMPUTERISED TOMOGRAM ABDOMEN
     Dosage: NOT MORE THAN 100ML
     Route: 042
     Dates: start: 20120921, end: 20120921

REACTIONS (2)
  - Breast oedema [Recovered/Resolved]
  - Pruritus [Recovered/Resolved]
